FAERS Safety Report 5888192-9 (Version None)
Quarter: 2008Q3

REPORT INFORMATION
  Report Type: 
  Country: None (occurrence: None)
  Receive Date: 20080916
  Receipt Date: 20080905
  Transmission Date: 20090109
  Serious: Yes (Hospitalization)
  Sender: FDA-Public Use
  Company Number: 2007BI020434

PATIENT
  Age: 58 Year
  Sex: Male

DRUGS (2)
  1. AVONEX [Suspect]
     Indication: MULTIPLE SCLEROSIS
     Dosage: 30 UG;QW;IM
     Route: 030
     Dates: start: 19971001, end: 20030801
  2. AVONEX [Suspect]
     Indication: MULTIPLE SCLEROSIS
     Dosage: 30 UG;QW;IM
     Route: 030
     Dates: start: 20030901

REACTIONS (10)
  - CONDITION AGGRAVATED [None]
  - DIZZINESS [None]
  - HYPOTONIA [None]
  - INFECTION [None]
  - INNER EAR DISORDER [None]
  - MULTIPLE SCLEROSIS [None]
  - OSTEOARTHRITIS [None]
  - PERONEAL NERVE PALSY [None]
  - THROMBOSIS [None]
  - VARICOSE VEIN [None]
